FAERS Safety Report 6372078-X (Version None)
Quarter: 2009Q3

REPORT INFORMATION
  Report Type: 
  Country: None (occurrence: None)
  Receive Date: 20090918
  Receipt Date: 20090904
  Transmission Date: 20100115
  Serious: Yes (Other)
  Sender: FDA-Public Use
  Company Number: 2009-1417

PATIENT
  Age: 37 Year
  Sex: Female

DRUGS (5)
  1. DYSPORT [Suspect]
     Indication: MUSCLE SPASTICITY
     Dates: start: 20020101, end: 20030101
  2. DYSPORT [Suspect]
     Indication: MUSCLE SPASTICITY
     Dates: start: 20030101
  3. DANTRIUM [Concomitant]
  4. EFFEXOR [Concomitant]
  5. LIORESAL [Concomitant]

REACTIONS (6)
  - ACTIVITIES OF DAILY LIVING IMPAIRED [None]
  - ASTHENIA [None]
  - DYSPHAGIA [None]
  - MOBILITY DECREASED [None]
  - MUSCULAR WEAKNESS [None]
  - PYREXIA [None]
